FAERS Safety Report 7657415-8 (Version None)
Quarter: 2011Q3

REPORT INFORMATION
  Report Type: 
  Country: None (occurrence: None)
  Receive Date: 20110804
  Receipt Date: 20110615
  Transmission Date: 20111222
  Serious: No
  Sender: FDA-Public Use
  Company Number: US-ASTRAZENECA-2011SE36398

PATIENT
  Age: 52 Year
  Sex: Female

DRUGS (2)
  1. LOMOTIL [Concomitant]
     Indication: DIARRHOEA
  2. VANDETANIB [Suspect]
     Indication: THYROID CANCER
     Route: 048
     Dates: start: 20110602

REACTIONS (3)
  - DYSPNOEA [None]
  - DIARRHOEA [None]
  - DEHYDRATION [None]
